FAERS Safety Report 16928513 (Version 2)
Quarter: 2019Q4

REPORT INFORMATION
  Report Type: Spontaneous
  Country: JP (occurrence: JP)
  Receive Date: 20191017
  Receipt Date: 20191031
  Transmission Date: 20200122
  Serious: Yes (Hospitalization, Other)
  Sender: FDA-Public Use
  Company Number: JP-ROCHE-2444048

PATIENT
  Age: 68 Year
  Sex: Female

DRUGS (7)
  1. HERCEPTIN [Suspect]
     Active Substance: TRASTUZUMAB
     Indication: BREAST CANCER
     Dosage: DOSE INTERVAL UNCERTAINTY
     Route: 041
     Dates: start: 20190919
  2. MEIACT [Suspect]
     Active Substance: CEFDITOREN PIVOXIL
     Indication: INFECTION
     Dosage: DOSAGE IS UNCERTAIN.
     Route: 065
     Dates: start: 20191004, end: 20191007
  3. PERJETA [Suspect]
     Active Substance: PERTUZUMAB
     Indication: BREAST CANCER
     Dosage: FORM STRENGTH: 420MG/14ML
     Route: 041
     Dates: start: 20190919
  4. NEUTROGIN [Suspect]
     Active Substance: LENOGRASTIM
     Indication: NEUTROPHIL COUNT DECREASED
     Route: 065
     Dates: start: 20190920, end: 20190930
  5. PERJETA [Suspect]
     Active Substance: PERTUZUMAB
     Dosage: FORM STRENGTH: 420MG/14ML
     Route: 041
     Dates: start: 20190918, end: 20190918
  6. DOCETAXEL. [Suspect]
     Active Substance: DOCETAXEL
     Indication: BREAST CANCER
     Dosage: DOSE INTERVAL UNCERTAINTY
     Route: 065
     Dates: start: 20190920
  7. HERCEPTIN [Suspect]
     Active Substance: TRASTUZUMAB
     Dosage: DOSE INTERVAL UNCERTAINTY
     Route: 041
     Dates: start: 20190918, end: 20190918

REACTIONS (4)
  - Device related infection [Recovered/Resolved]
  - Liver disorder [Recovered/Resolved]
  - Diarrhoea [Recovered/Resolved]
  - Neutropenia [Recovered/Resolved]

NARRATIVE: CASE EVENT DATE: 20190920
